FAERS Safety Report 7203549-1 (Version None)
Quarter: 2010Q4

REPORT INFORMATION
  Report Type: 
  Country: None (occurrence: None)
  Receive Date: 20101230
  Receipt Date: 20101224
  Transmission Date: 20110411
  Serious: Yes (Death, Other)
  Sender: FDA-Public Use
  Company Number: JP-ASTELLAS-2010JP007631

PATIENT
  Age: 67 Year
  Sex: Female

DRUGS (5)
  1. PROGRAF [Suspect]
     Indication: STILL'S DISEASE ADULT ONSET
     Dosage: 3 MG, UNKNOWN/D
     Route: 065
  2. METHOTREXATE [Concomitant]
     Indication: STILL'S DISEASE ADULT ONSET
     Dosage: 4 MG, WEEKLY
     Route: 065
  3. PREDNISOLONE [Concomitant]
     Indication: STILL'S DISEASE ADULT ONSET
     Dosage: 40 MG, UNKNOWN/D
     Route: 048
  4. PREDNISOLONE [Concomitant]
     Route: 048
  5. TERBINAFINE HCL [Concomitant]
     Indication: FUNGAL SKIN INFECTION
     Route: 065

REACTIONS (4)
  - CYTOMEGALOVIRUS INFECTION [None]
  - FUNGAL SKIN INFECTION [None]
  - PNEUMOCYSTIS JIROVECI PNEUMONIA [None]
  - STOMATITIS [None]
